FAERS Safety Report 5373315-0 (Version None)
Quarter: 2007Q2

REPORT INFORMATION
  Report Type: 
  Country: None (occurrence: None)
  Receive Date: 20070626
  Receipt Date: 20070626
  Transmission Date: 20071010
  Serious: Yes (Life-Threatening, Hospitalization, Other)
  Sender: FDA-Public Use
  Company Number: None

PATIENT
  Sex: Female
  Weight: 81.1939 kg

DRUGS (2)
  1. OXYCONTIN [Suspect]
     Indication: PAIN
     Dosage: 60 MGS BID PO
     Route: 048
     Dates: start: 20050101, end: 20070426
  2. XANAX [Suspect]
     Indication: ANXIETY
     Dosage: .75 MGS  4 X PER DAY  PO
     Route: 048
     Dates: start: 20070301, end: 20070426

REACTIONS (12)
  - AMNESIA [None]
  - BREAKTHROUGH PAIN [None]
  - DISTURBANCE IN ATTENTION [None]
  - DRUG INTERACTION [None]
  - DYSARTHRIA [None]
  - IMPAIRED DRIVING ABILITY [None]
  - IMPAIRED WORK ABILITY [None]
  - NARCOLEPSY [None]
  - PAIN [None]
  - PANIC REACTION [None]
  - THINKING ABNORMAL [None]
  - TREMOR [None]
